FAERS Safety Report 6093485-9 (Version None)
Quarter: 2009Q1

REPORT INFORMATION
  Report Type: 
  Country: None (occurrence: None)
  Receive Date: 20090226
  Receipt Date: 20090213
  Transmission Date: 20090719
  Serious: Yes (Other)
  Sender: FDA-Public Use
  Company Number: US-AMGEN-US332059

PATIENT
  Sex: Male
  Weight: 78 kg

DRUGS (4)
  1. NPLATE [Suspect]
     Indication: IDIOPATHIC THROMBOCYTOPENIC PURPURA
     Route: 058
     Dates: start: 20080101
  2. GLUCOCORTICOIDS [Concomitant]
  3. DANAZOL [Concomitant]
  4. VINCRISTINE [Concomitant]

REACTIONS (5)
  - DIZZINESS [None]
  - FALL [None]
  - INSOMNIA [None]
  - NAUSEA [None]
  - PLATELET COUNT DECREASED [None]
